FAERS Safety Report 7125644 (Version 2)
Quarter: 2013Q1

REPORT INFORMATION
  Report Type: Spontaneous
  Country: US (occurrence: US)
  Receive Date: 20090923
  Receipt Date: 20130115
  Transmission Date: 20140127
  Serious: No
  Sender: FDA-Public Use
  Company Number: US-ASTRAZENECA-2004UW21129

PATIENT
  Age: 53 Year
  Sex: Male
  Weight: 122.5 kg

DRUGS (21)
  1. SEROQUEL [Suspect]
     Indication: THINKING ABNORMAL
     Dosage: 125-150 MG PER DAY
     Route: 048
  2. SEROQUEL [Suspect]
     Indication: DEPRESSION
     Dosage: 125-150 MG PER DAY
     Route: 048
  3. SEROQUEL [Suspect]
     Indication: SLEEP DISORDER
     Dosage: 125-150 MG PER DAY
     Route: 048
  4. SEROQUEL [Suspect]
     Indication: THINKING ABNORMAL
     Route: 048
  5. SEROQUEL [Suspect]
     Indication: DEPRESSION
     Route: 048
  6. SEROQUEL [Suspect]
     Indication: SLEEP DISORDER
     Route: 048
  7. SEROQUEL [Suspect]
     Indication: THINKING ABNORMAL
     Route: 048
  8. SEROQUEL [Suspect]
     Indication: DEPRESSION
     Route: 048
  9. SEROQUEL [Suspect]
     Indication: SLEEP DISORDER
     Route: 048
  10. SEROQUEL [Suspect]
     Indication: THINKING ABNORMAL
     Route: 048
  11. SEROQUEL [Suspect]
     Indication: DEPRESSION
     Route: 048
  12. SEROQUEL [Suspect]
     Indication: SLEEP DISORDER
     Route: 048
  13. SEROQUEL [Suspect]
     Indication: THINKING ABNORMAL
     Dosage: GENERIC
     Route: 048
  14. SEROQUEL [Suspect]
     Indication: DEPRESSION
     Dosage: GENERIC
     Route: 048
  15. SEROQUEL [Suspect]
     Indication: SLEEP DISORDER
     Dosage: GENERIC
     Route: 048
  16. LEXAPRO [Concomitant]
  17. XANAX [Concomitant]
  18. RESTORIL [Concomitant]
  19. ADVIL [Concomitant]
  20. ASPIRIN [Concomitant]
  21. TRAZODONE [Concomitant]

REACTIONS (14)
  - Drug effect delayed [Unknown]
  - Therapeutic response unexpected [Unknown]
  - Myalgia [Unknown]
  - Stress [Unknown]
  - Neurotransmitter level altered [Unknown]
  - Aggression [Unknown]
  - Personality change [Unknown]
  - Lyme disease [Unknown]
  - Nightmare [Unknown]
  - Irritability [Unknown]
  - Dizziness [Unknown]
  - Lethargy [Unknown]
  - Sedation [Unknown]
  - Intentional drug misuse [Unknown]
